FAERS Safety Report 5245177-3 (Version None)
Quarter: 2007Q1

REPORT INFORMATION
  Report Type: 
  Country: None (occurrence: None)
  Receive Date: 20070223
  Receipt Date: 20070212
  Transmission Date: 20070707
  Serious: Yes (Death, Other)
  Sender: FDA-Public Use
  Company Number: CA-JNJFOC-20050300948

PATIENT
  Sex: Female

DRUGS (11)
  1. CAELYX [Suspect]
     Route: 042
  2. CAELYX [Suspect]
     Dosage: CYCLES 6-9
     Route: 042
  3. CAELYX [Suspect]
     Indication: BREAST CANCER METASTATIC
     Dosage: CYCLES 1-5
     Route: 042
  4. CYCLOPHOSPHAMIDE [Suspect]
     Route: 042
  5. CYCLOPHOSPHAMIDE [Suspect]
     Indication: BREAST CANCER METASTATIC
     Dosage: CYCLES 1-9
     Route: 042
  6. SYNTHROID [Concomitant]
     Indication: HYPOTHYROIDISM
  7. ADVIL [Concomitant]
     Indication: ARTHRALGIA
  8. TYLENOL [Concomitant]
     Indication: SLEEP DISORDER
  9. PROCHLORPERAZINE [Concomitant]
     Indication: NAUSEA
  10. VITAMIN B6 [Concomitant]
     Indication: PROPHYLAXIS
  11. PROTEIN SUPPLEMENT [Concomitant]
     Route: 048

REACTIONS (7)
  - CELLULITIS [None]
  - DISEASE PROGRESSION [None]
  - METASTASES TO BONE [None]
  - OEDEMA PERIPHERAL [None]
  - PALMAR-PLANTAR ERYTHRODYSAESTHESIA SYNDROME [None]
  - SKIN EXFOLIATION [None]
  - SKIN TOXICITY [None]
